FAERS Safety Report 14742474 (Version 2)
Quarter: 2019Q1

REPORT INFORMATION
  Report Type: Spontaneous
  Country: US (occurrence: US)
  Receive Date: 20180410
  Receipt Date: 20190116
  Transmission Date: 20190417
  Serious: No
  Sender: FDA-Public Use
  Company Number: US-SAGENT PHARMACEUTICALS-2017SAG000804

PATIENT

DRUGS (8)
  1. ZOLEDRONIC ACID [Suspect]
     Active Substance: ZOLEDRONIC ACID
     Indication: OSTEOPOROSIS
     Dosage: 5 MG, ONCE
     Route: 042
     Dates: start: 20170808, end: 20170808
  2. VITAMIN D3 [Concomitant]
     Active Substance: CHOLECALCIFEROL
  3. MAGNESIUM CHLORIDE W/POTASSIUM CHLO/00520601/ [Concomitant]
  4. ZOCOR [Concomitant]
     Active Substance: SIMVASTATIN
  5. TYLENOL [Concomitant]
     Active Substance: ACETAMINOPHEN
  6. FEMARA [Concomitant]
     Active Substance: LETROZOLE
  7. CLARITINE S [Concomitant]
  8. VITAMIN B12 [Concomitant]
     Active Substance: CYANOCOBALAMIN

REACTIONS (5)
  - Pain in extremity [Not Recovered/Not Resolved]
  - Gait disturbance [Not Recovered/Not Resolved]
  - Myalgia [Unknown]
  - Arthralgia [Unknown]
  - Pain in extremity [Not Recovered/Not Resolved]

NARRATIVE: CASE EVENT DATE: 20170808
